FAERS Safety Report 19118422 (Version 3)
Quarter: 2023Q2

REPORT INFORMATION
  Report Type: Spontaneous
  Country: US (occurrence: US)
  Receive Date: 20210409
  Receipt Date: 20230523
  Transmission Date: 20230721
  Serious: No
  Sender: FDA-Public Use
  Company Number: US-PFIZER INC-2021282561

PATIENT
  Age: 63 Year
  Sex: Male

DRUGS (1)
  1. XELJANZ XR [Suspect]
     Active Substance: TOFACITINIB CITRATE
     Indication: Psoriasis
     Dosage: 11 MG, 1X/DAY
     Route: 048
     Dates: start: 202102

REACTIONS (7)
  - Skin laceration [Unknown]
  - Skin disorder [Unknown]
  - Limb discomfort [Unknown]
  - Dry skin [Unknown]
  - Skin fissures [Unknown]
  - Cerebral disorder [Unknown]
  - Off label use [Unknown]
